FAERS Safety Report 13650751 (Version 1)
Quarter: 2017Q2

REPORT INFORMATION
  Report Type: Spontaneous
  Country: US (occurrence: US)
  Receive Date: 20170614
  Receipt Date: 20170614
  Transmission Date: 20170830
  Serious: Yes (Other)
  Sender: FDA-Public Use
  Company Number: US-ASTRAZENECA-2017SE60761

PATIENT
  Sex: Female

DRUGS (1)
  1. LYNPARZA [Suspect]
     Active Substance: OLAPARIB
     Route: 048
     Dates: start: 201611

REACTIONS (5)
  - Colon cancer recurrent [Unknown]
  - Nausea [Unknown]
  - Dysgeusia [Unknown]
  - Hepatic cancer recurrent [Unknown]
  - Fatigue [Unknown]
